FAERS Safety Report 25212509 (Version 2)
Quarter: 2025Q2

REPORT INFORMATION
  Report Type: Spontaneous
  Country: US (occurrence: US)
  Receive Date: 20250418
  Receipt Date: 20250619
  Transmission Date: 20250717
  Serious: No
  Sender: SANOFI AVENTIS
  Company Number: US-SA-2025SA111523

PATIENT
  Sex: Female
  Weight: 83.18 kg

DRUGS (2)
  1. DUPIXENT [Suspect]
     Active Substance: DUPILUMAB
     Indication: Illness
     Dosage: 300 MG, QOW
     Route: 058
  2. TALTZ [Suspect]
     Active Substance: IXEKIZUMAB

REACTIONS (5)
  - Heart rate increased [Not Recovered/Not Resolved]
  - Malaise [Unknown]
  - Epicondylitis [Not Recovered/Not Resolved]
  - Skin discomfort [Not Recovered/Not Resolved]
  - Drug ineffective [Unknown]
